FAERS Safety Report 7951206-6 (Version None)
Quarter: 2011Q4

REPORT INFORMATION
  Report Type: 
  Country: None (occurrence: None)
  Receive Date: 20111201
  Receipt Date: 20111128
  Transmission Date: 20120403
  Serious: Yes (Hospitalization)
  Sender: FDA-Public Use
  Company Number: PHEH2011US010400

PATIENT
  Age: 53 Year
  Sex: Female

DRUGS (3)
  1. TOBI [Suspect]
     Dosage: 300 MG, 2 TIMES A DAY 28 DAYS ON AND 28 DAYS OFF
     Dates: start: 20110809, end: 20111003
  2. ANTIBIOTICS [Concomitant]
     Route: 042
  3. PULMOZYME [Concomitant]

REACTIONS (2)
  - DRUG HYPERSENSITIVITY [None]
  - INFECTION [None]
